FAERS Safety Report 4931510-6 (Version None)
Quarter: 2006Q1

REPORT INFORMATION
  Report Type: 
  Country: None (occurrence: None)
  Receive Date: 20060303
  Receipt Date: 20060224
  Transmission Date: 20060701
  Serious: Yes (Other)
  Sender: FDA-Public Use
  Company Number: FR-ABBOTT-06P-056-0326096-00

PATIENT
  Age: 68 Year
  Sex: Male

DRUGS (3)
  1. DEPAKENE [Suspect]
     Indication: EPILEPSY
     Route: 048
     Dates: start: 20050101, end: 20060201
  2. DEPAKENE [Suspect]
     Indication: EPILEPSY
     Dates: start: 20060202
  3. VERAPAMIL [Interacting]
     Indication: HYPERTENSION
     Route: 048
     Dates: start: 20051201

REACTIONS (5)
  - DRUG INTERACTION [None]
  - DRUG LEVEL DECREASED [None]
  - EPILEPSY [None]
  - GASTROINTESTINAL DISORDER [None]
  - HYPOTENSION [None]
